FAERS Safety Report 13936764 (Version 5)
Quarter: 2019Q2

REPORT INFORMATION
  Report Type: Spontaneous
  Country: US (occurrence: US)
  Receive Date: 20170905
  Receipt Date: 20190426
  Transmission Date: 20190711
  Serious: Yes (Other)
  Sender: FDA-Public Use
  Company Number: US-PFIZER INC-2017381914

PATIENT
  Age: 71 Year
  Sex: Female
  Weight: 65 kg

DRUGS (6)
  1. IBRANCE [Suspect]
     Active Substance: PALBOCICLIB
     Indication: BREAST CANCER
     Dosage: 100 MG, CYCLIC, FOR 21 DAYS THEN OFF FOR 7 DAYS
     Dates: start: 201701, end: 2017
  2. LETROZOLE. [Concomitant]
     Active Substance: LETROZOLE
     Indication: NEOPLASM MALIGNANT
     Dosage: 2.5 MG, DAILY
     Route: 048
  3. CALCIUM WITH D3 [Concomitant]
     Indication: DRUG THERAPY
     Dosage: 600 MG, DAILY
  4. XGEVA [Concomitant]
     Active Substance: DENOSUMAB
     Indication: DRUG THERAPY
     Dosage: 1 DF, MONTHLY
  5. PROPRANOLOL [Concomitant]
     Active Substance: PROPRANOLOL HYDROCHLORIDE
     Indication: HYPERTENSION
     Dosage: 80 MG, 2X/DAY
     Route: 048
  6. RAMIPRIL. [Concomitant]
     Active Substance: RAMIPRIL
     Indication: HYPERTENSION
     Dosage: 10 MG, 2X/DAY
     Route: 048

REACTIONS (5)
  - White blood cell count decreased [Recovering/Resolving]
  - Urinary tract infection [Unknown]
  - Emotional distress [Unknown]
  - Nervousness [Unknown]
  - Weight increased [Unknown]

NARRATIVE: CASE EVENT DATE: 201707
